FAERS Safety Report 6984641 (Version 3)
Quarter: 2014Q2

REPORT INFORMATION
  Report Type: Spontaneous
  Country: US (occurrence: US)
  Receive Date: 20090501
  Receipt Date: 20140415
  Transmission Date: 20141212
  Serious: Yes (Hospitalization, Other)
  Sender: FDA-Public Use
  Company Number: US-ALEXION-A200800245

PATIENT
  Age: 70 Year
  Sex: Male
  Weight: 95 kg

DRUGS (16)
  1. SOLIRIS [Suspect]
     Indication: PAROXYSMAL NOCTURNAL HAEMOGLOBINURIA
     Dosage: 600 MG, QW
     Route: 042
     Dates: start: 20080320, end: 20080411
  2. SOLIRIS [Suspect]
     Dosage: 900 MG, UNK
     Route: 042
     Dates: start: 20080416, end: 20080613
  3. SOLIRIS [Suspect]
     Dosage: 900 MG, UNK
     Route: 042
     Dates: start: 20080917, end: 20080917
  4. SOLIRIS [Suspect]
     Dosage: UNK
     Route: 042
     Dates: start: 20080612
  5. DANAZOL [Suspect]
     Indication: PAROXYSMAL NOCTURNAL HAEMOGLOBINURIA
     Dosage: UNK, UNK
     Route: 048
     Dates: start: 200806, end: 200808
  6. EXJADE [Suspect]
     Indication: PAROXYSMAL NOCTURNAL HAEMOGLOBINURIA
     Dosage: 500 MG, QID
     Route: 048
     Dates: end: 20080906
  7. EXJADE [Suspect]
     Dosage: 500 MG, TID
     Route: 048
     Dates: start: 20080908
  8. ALLOPURINOL [Concomitant]
     Indication: GOUT
     Dosage: 150 MG, QD
     Route: 048
  9. LOPRESSOR [Concomitant]
     Indication: HYPERTENSION
     Dosage: 50 MG, BID
     Route: 048
  10. LASIX /00032601/ [Concomitant]
     Indication: HYPERTENSION
     Dosage: 40 MG, QD
     Route: 048
  11. LASIX /00032601/ [Concomitant]
     Dates: start: 20081014
  12. ZOCOR [Concomitant]
     Indication: BLOOD CHOLESTEROL INCREASED
     Dosage: 40 MG, QD
     Route: 048
  13. ASPIRIN [Concomitant]
     Indication: CARDIAC DISORDER
     Dosage: 81 MG, QD
     Route: 048
  14. FOLIC ACID [Concomitant]
     Indication: PAROXYSMAL NOCTURNAL HAEMOGLOBINURIA
     Dosage: 1 MG, QD
     Route: 048
  15. VITAMIN B6 [Concomitant]
     Indication: BLOOD DISORDER
     Dosage: 50 MG, BID
     Route: 048
  16. MULTIVITAMIN /00831701/ [Concomitant]
     Indication: VITAMIN SUPPLEMENTATION
     Dosage: UNK, QD
     Route: 048

REACTIONS (9)
  - Cardiac failure congestive [Recovered/Resolved]
  - Abdominal pain lower [Recovered/Resolved]
  - Haemoglobin decreased [Unknown]
  - Blood lactate dehydrogenase increased [Unknown]
  - Abdominal discomfort [Recovered/Resolved]
  - Blood creatinine increased [Unknown]
  - Rash [Recovered/Resolved]
  - Nausea [Recovered/Resolved]
  - Fatigue [Unknown]
